FAERS Safety Report 6538912-5 (Version None)
Quarter: 2010Q1

REPORT INFORMATION
  Report Type: 
  Country: None (occurrence: None)
  Receive Date: 20100112
  Receipt Date: 20100104
  Transmission Date: 20100710
  Serious: Yes (Hospitalization)
  Sender: FDA-Public Use
  Company Number: 1000011207

PATIENT
  Sex: Male
  Weight: 100 kg

DRUGS (6)
  1. ESCITALOPRAM [Suspect]
     Indication: DEPRESSION
     Dosage: 20 MG (20 MG, 1 IN 1 D), ORAL
     Route: 048
     Dates: start: 20091123
  2. LEXOMIL [Concomitant]
  3. CIALIS [Concomitant]
  4. DOGMATIL [Concomitant]
  5. NOCTAMIDE [Concomitant]
  6. TERALITHE [Concomitant]

REACTIONS (3)
  - EPILEPSY [None]
  - FALL [None]
  - JAW FRACTURE [None]
